FAERS Safety Report 8166455-4 (Version None)
Quarter: 2012Q1

REPORT INFORMATION
  Report Type: 
  Country: None (occurrence: None)
  Receive Date: 20120227
  Receipt Date: 20110926
  Transmission Date: 20120608
  Serious: No
  Sender: FDA-Public Use
  Company Number: US-MYLANLABS-2011S1017091

PATIENT
  Age: 15 Year
  Sex: Female
  Weight: 54.43 kg

DRUGS (2)
  1. YAZ /06531601/ [Concomitant]
     Indication: ORAL CONTRACEPTION
     Route: 048
  2. AMNESTEEM [Suspect]
     Indication: ACNE
     Route: 048
     Dates: start: 20110505, end: 20110708

REACTIONS (2)
  - BLOOD CHOLESTEROL INCREASED [None]
  - BLOOD TRIGLYCERIDES INCREASED [None]
